FAERS Safety Report 20451994 (Version 1)
Quarter: 2022Q1

REPORT INFORMATION
  Report Type: Other
  Country: IL (occurrence: None)
  Receive Date: 20220209
  Receipt Date: 20220209
  Transmission Date: 20220423
  Serious: Yes (Other)
  Sender: FDA-Public Use
  Company Number: IL-ROCHE-3013927

PATIENT
  Age: 69 Year
  Sex: Female

DRUGS (1)
  1. OCREVUS [Suspect]
     Active Substance: OCRELIZUMAB
     Indication: Multiple sclerosis
     Dosage: SHE RECEIVED HER 5TH INFUSION ON: 15/NOV/2021
     Route: 065
     Dates: end: 20211115

REACTIONS (3)
  - Herpes zoster [Not Recovered/Not Resolved]
  - Ulcer [Not Recovered/Not Resolved]
  - Oropharyngeal pain [Not Recovered/Not Resolved]

NARRATIVE: CASE EVENT DATE: 20211121
